FAERS Safety Report 4432308-8 (Version None)
Quarter: 2004Q3

REPORT INFORMATION
  Report Type: 
  Country: None (occurrence: None)
  Receive Date: 20040820
  Receipt Date: 20040813
  Transmission Date: 20050211
  Serious: Yes (Other)
  Sender: FDA-Public Use
  Company Number: 2004-08-0706

PATIENT
  Sex: Male

DRUGS (2)
  1. PEG-INTRON [Suspect]
     Dosage: SUBCUTANEOUS
     Route: 058
     Dates: start: 20040401
  2. REBETOL [Suspect]
     Dosage: ORAL
     Route: 048
     Dates: start: 20040401

REACTIONS (1)
  - TUBERCULIN TEST POSITIVE [None]
